FAERS Safety Report 16693161 (Version 1)
Quarter: 2019Q3

REPORT INFORMATION
  Report Type: Spontaneous
  Country: US (occurrence: US)
  Receive Date: 20190812
  Receipt Date: 20190812
  Transmission Date: 20191004
  Serious: No
  Sender: FDA-Public Use
  Company Number: US-GLAXOSMITHKLINE-US2019143664

PATIENT
  Age: 24 Year
  Sex: Female

DRUGS (3)
  1. NICODERM CQ [Suspect]
     Active Substance: NICOTINE
     Indication: SMOKING CESSATION THERAPY
     Dosage: 21 MG, QD
     Route: 061
  2. NICODERM CQ [Suspect]
     Active Substance: NICOTINE
     Indication: SMOKING CESSATION THERAPY
     Dosage: 14 MG, QD
     Route: 061
  3. NICORETTE [Suspect]
     Active Substance: NICOTINE
     Indication: SMOKING CESSATION THERAPY
     Dosage: UNK UNK, BID
     Route: 048

REACTIONS (6)
  - Malaise [Recovering/Resolving]
  - Therapeutic product effect incomplete [Unknown]
  - Drug intolerance [Recovering/Resolving]
  - Application site pruritus [Recovering/Resolving]
  - Oropharyngeal pain [Recovering/Resolving]
  - Nicotine dependence [Recovering/Resolving]
